FAERS Safety Report 9143792 (Version 1)
Quarter: 2013Q1

REPORT INFORMATION
  Report Type: Spontaneous
  Country: IT (occurrence: IT)
  Receive Date: 20130306
  Receipt Date: 20130306
  Transmission Date: 20140127
  Serious: Yes (Hospitalization)
  Sender: FDA-Public Use
  Company Number: IT-ROCHE-1197202

PATIENT
  Age: 62 Year
  Sex: Male
  Weight: 85 kg

DRUGS (2)
  1. ROCEPHIN [Suspect]
     Indication: RESPIRATORY TRACT INFECTION
     Route: 030
     Dates: start: 20121206, end: 20121206
  2. LOBIVON [Concomitant]

REACTIONS (1)
  - Neuralgia [Unknown]
